FAERS Safety Report 10426315 (Version 1)
Quarter: 2014Q3

REPORT INFORMATION
  Report Type: Spontaneous
  Country: US (occurrence: None)
  Receive Date: 20140902
  Receipt Date: 20140902
  Transmission Date: 20150326
  Serious: No
  Sender: FDA-Public Use
  Company Number: None

PATIENT
  Age: 60 Year
  Sex: Female
  Weight: 77.11 kg

DRUGS (14)
  1. PERFECT IRON [Concomitant]
  2. VITAMIN B COMPLEX [Concomitant]
     Active Substance: CYANOCOBALAMIN\DEXPANTHENOL\NIACINAMIDE\PYRIDOXINE HYDROCHLORIDE\RIBOFLAVIN 5^-PHOSPHATE SODIUM\THIAMINE HYDROCHLORIDE\VITAMIN B COMPLEX
  3. CORDYCEPS SINENSIS EXTRACT\PANAX GINSENG ROOT EXTRACT\POMEGRANATE [Concomitant]
     Active Substance: CORDYCEPS SINENSIS EXTRACT\PANAX GINSENG ROOT EXTRACT\POMEGRANATE
  4. KRILL [Concomitant]
  5. MILK TH [Concomitant]
  6. VITAMIN D3 [Concomitant]
     Active Substance: CHOLECALCIFEROL
  7. OMEGA 3 [Concomitant]
     Active Substance: OMEGA-3 FATTY ACIDS
  8. GERITOL [Concomitant]
     Active Substance: MINERALS\VITAMINS
  9. CALCIUM [Concomitant]
     Active Substance: CALCIUM
  10. SIMVASTATIN 10 MG UD TAB UDL AKA: ZOCOR MERCK-SCRIPT#6673188-PICK UP-TP-PHARMACY 333-NAAMANS ROADS CLAYMONT, DE. 19703 [Suspect]
     Active Substance: SIMVASTATIN
     Indication: BLOOD TRIGLYCERIDES INCREASED
     Route: 048
     Dates: start: 20140812, end: 20140813
  11. SIMVASTATIN 10 MG UD TAB UDL AKA: ZOCOR MERCK-SCRIPT#6673188-PICK UP-TP-PHARMACY 333-NAAMANS ROADS CLAYMONT, DE. 19703 [Suspect]
     Active Substance: SIMVASTATIN
     Indication: LOW DENSITY LIPOPROTEIN INCREASED
     Route: 048
     Dates: start: 20140812, end: 20140813
  12. 1000-C-500-W/ROSE GUOS [Concomitant]
  13. NSAID -ADULT LOW DOSE ASPIRIN [Concomitant]
  14. VITAMIN E [Concomitant]
     Active Substance: .ALPHA.-TOCOPHEROL

REACTIONS (5)
  - Asthenia [None]
  - Tenderness [None]
  - Back pain [None]
  - Headache [None]
  - Constipation [None]

NARRATIVE: CASE EVENT DATE: 20140711
